FAERS Safety Report 11481598 (Version 1)
Quarter: 2015Q3

REPORT INFORMATION
  Report Type: Report from Study
  Country: US (occurrence: US)
  Receive Date: 20150909
  Receipt Date: 20150909
  Transmission Date: 20151125
  Serious: Yes (Death, Hospitalization)
  Sender: FDA-Public Use
  Company Number: US-ACTELION-A-NJ2014-104009

PATIENT
  Age: 57 Year
  Sex: Female

DRUGS (6)
  1. TRACLEER [Suspect]
     Active Substance: BOSENTAN
     Indication: PULMONARY HYPERTENSION
     Dosage: 125 MG, BID
     Route: 048
     Dates: start: 20140728
  2. ADCIRCA [Concomitant]
     Active Substance: TADALAFIL
  3. ASPIRIN. [Concomitant]
     Active Substance: ASPIRIN
  4. COUMADIN [Concomitant]
     Active Substance: WARFARIN SODIUM
     Dosage: 125 MG, BID
  5. TYVASO [Concomitant]
     Active Substance: TREPROSTINIL
  6. SILDENAFIL. [Concomitant]
     Active Substance: SILDENAFIL

REACTIONS (13)
  - Fluid overload [Fatal]
  - Pulmonary arterial hypertension [Unknown]
  - Peripheral swelling [Unknown]
  - Oedema [Unknown]
  - Ammonia increased [Fatal]
  - Abdominal discomfort [Unknown]
  - Nausea [Unknown]
  - Haemoglobin decreased [Unknown]
  - Cardiac failure congestive [Unknown]
  - Anaemia [Unknown]
  - Fluid retention [Unknown]
  - Hepatic failure [Fatal]
  - Depressed level of consciousness [Fatal]

NARRATIVE: CASE EVENT DATE: 20141026
